FAERS Safety Report 5546046-1 (Version None)
Quarter: 2007Q4

REPORT INFORMATION
  Report Type: 
  Country: None (occurrence: None)
  Receive Date: 20071211
  Receipt Date: 20070904
  Transmission Date: 20080405
  Serious: No
  Sender: FDA-Public Use
  Company Number: US-BRISTOL-MYERS SQUIBB COMPANY-13896600

PATIENT
  Age: 63 Year
  Sex: Male
  Weight: 88 kg

DRUGS (2)
  1. EMSAM [Suspect]
     Route: 062
  2. SOY PROTEIN [Interacting]

REACTIONS (2)
  - FOOD INTERACTION [None]
  - MUSCLE SPASMS [None]
